FAERS Safety Report 25973913 (Version 1)
Quarter: 2025Q4

REPORT INFORMATION
  Report Type: Spontaneous
  Country: EU (occurrence: EU)
  Receive Date: 20251029
  Receipt Date: 20251029
  Transmission Date: 20260117
  Serious: Yes (Death, Life-Threatening, Other)
  Sender: RANBAXY
  Company Number: EU-SUN PHARMACEUTICAL INDUSTRIES LTD-2025R1-533625

PATIENT
  Age: 60 Year
  Sex: Male

DRUGS (4)
  1. LEVOFLOXACIN [Suspect]
     Active Substance: LEVOFLOXACIN
     Indication: Legionella infection
     Dosage: UNK
     Route: 065
  2. COTRIMOXAZOLE [Suspect]
     Active Substance: SULFAMETHOXAZOLE\TRIMETHOPRIM
     Indication: Pneumonia
     Dosage: UNK
     Route: 065
  3. CEFEPIME [Suspect]
     Active Substance: CEFEPIME HYDROCHLORIDE
     Indication: Pneumonia
     Dosage: UNK
     Route: 065
  4. SPIRAMYCIN [Suspect]
     Active Substance: SPIRAMYCIN
     Indication: Pneumonia
     Dosage: UNK
     Route: 065

REACTIONS (11)
  - Disease progression [Fatal]
  - Multiple organ dysfunction syndrome [Unknown]
  - Drug ineffective [Unknown]
  - Anuria [Unknown]
  - Hepatic failure [Unknown]
  - Hypercapnia [Unknown]
  - Haemodynamic instability [Unknown]
  - Hypotension [Unknown]
  - Hypoperfusion [Unknown]
  - Hyperlactacidaemia [Unknown]
  - Acidosis [Unknown]
